FAERS Safety Report 8864230 (Version 1)
Quarter: 2012Q4

REPORT INFORMATION
  Report Type: 
  Country: US (occurrence: US)
  Receive Date: 20121024
  Receipt Date: 20121024
  Transmission Date: 20130627
  Serious: No
  Sender: FDA-Public Use
  Company Number: US-AMGEN-USASP2011066620

PATIENT
  Age: 53 Year
  Sex: Male

DRUGS (11)
  1. ENBREL [Suspect]
     Indication: PRODUCT USED FOR UNKNOWN INDICATION
     Dosage: 50 mg, qwk
     Route: 058
  2. GEMFIBROZIL [Concomitant]
     Dosage: 600 mg, UNK
     Route: 048
  3. ATENOLOL [Concomitant]
     Dosage: 25 mg, UNK
     Route: 048
  4. LOVASTATIN [Concomitant]
     Dosage: 40 mg, UNK
     Route: 048
  5. AMOXICILLIN [Concomitant]
     Dosage: 250 mg, UNK
     Route: 048
  6. DIAZEPAM [Concomitant]
     Dosage: 20 mg, UNK
  7. GABAPENTIN [Concomitant]
     Dosage: 300 mg, UNK
     Route: 048
  8. FENTANYL CITRATE [Concomitant]
     Dosage: 250 mug, UNK
  9. BENICAR [Concomitant]
     Dosage: 20 mg, UNK
     Route: 048
  10. FOLIC ACID [Concomitant]
     Route: 048
  11. METHOTREXATE [Concomitant]
     Dosage: 25 UNK, UNK
     Route: 048

REACTIONS (1)
  - Nasopharyngitis [Unknown]
